FAERS Safety Report 18958856 (Version 1)
Quarter: 2021Q1

REPORT INFORMATION
  Report Type: Spontaneous
  Country: US (occurrence: US)
  Receive Date: 20210302
  Receipt Date: 20210302
  Transmission Date: 20210420
  Serious: No
  Sender: FDA-Public Use
  Company Number: US-PFIZER INC-2020033488

PATIENT
  Age: 67 Year

DRUGS (1)
  1. TOVIAZ [Suspect]
     Active Substance: FESOTERODINE FUMARATE
     Indication: BLADDER DISORDER
     Dosage: 8 MG (TAKE AS DIRECTED FOR BLADDER)
     Route: 048

REACTIONS (2)
  - Off label use [Unknown]
  - Illness [Unknown]
